FAERS Safety Report 9714683 (Version 1)
Quarter: 2013Q4

REPORT INFORMATION
  Report Type: Spontaneous
  Country: KW (occurrence: None)
  Receive Date: 20131125
  Receipt Date: 20131125
  Transmission Date: 20140711
  Serious: Yes (Hospitalization)
  Sender: FDA-Public Use
  Company Number: 2013P1021071

PATIENT
  Age: 27 Year
  Sex: Male

DRUGS (1)
  1. TRANEXAMIC ACID [Suspect]
     Indication: URINARY BLADDER HAEMORRHAGE
     Dosage: 10 HM; X1; IV
     Route: 042

REACTIONS (4)
  - Peripheral artery thrombosis [None]
  - Incorrect dose administered [None]
  - Acute respiratory distress syndrome [None]
  - Peripheral ischaemia [None]
